FAERS Safety Report 6935020-6 (Version None)
Quarter: 2010Q3

REPORT INFORMATION
  Report Type: 
  Country: None (occurrence: None)
  Receive Date: 20100822
  Receipt Date: 20100810
  Transmission Date: 20110219
  Serious: Yes (Life-Threatening, Hospitalization)
  Sender: FDA-Public Use
  Company Number: PHHO2010US12299

PATIENT
  Sex: Female

DRUGS (17)
  1. LETROZOLE [Suspect]
     Indication: BREAST CANCER
     Dosage: 2.5 MG, QD
     Route: 048
     Dates: start: 20100630
  2. LAPATINIB [Concomitant]
  3. ALBUTEROL [Concomitant]
  4. AMBIEN [Concomitant]
  5. ANTIVERT [Concomitant]
  6. CRESTOR [Concomitant]
  7. DARVOCET-N 100 [Concomitant]
  8. DARVON [Concomitant]
  9. IMODIUM [Concomitant]
  10. LOPRESSOR [Concomitant]
  11. LOTRIMIN [Concomitant]
  12. LOTRISONE [Concomitant]
  13. MONOPRIL [Concomitant]
  14. NEXIUM [Concomitant]
  15. PHENERGAN [Concomitant]
  16. MAGNESIUM [Concomitant]
  17. SYMBICORT [Concomitant]

REACTIONS (5)
  - BLOOD UREA INCREASED [None]
  - DEHYDRATION [None]
  - HYPONATRAEMIA [None]
  - OVERDOSE [None]
  - RENAL FAILURE [None]
